FAERS Safety Report 17604752 (Version 1)
Quarter: 2020Q1

REPORT INFORMATION
  Report Type: Spontaneous
  Country: US (occurrence: US)
  Receive Date: 20200331
  Receipt Date: 20200331
  Transmission Date: 20200409
  Serious: Yes (Hospitalization)
  Sender: FDA-Public Use
  Company Number: None

PATIENT
  Age: 39 Year
  Sex: Male
  Weight: 84 kg

DRUGS (2)
  1. DOCETAXEL. [Suspect]
     Active Substance: DOCETAXEL
     Indication: HEAD AND NECK CANCER
     Dosage: ?          OTHER FREQUENCY:EVERY 21 DAYS;?
     Route: 042
     Dates: start: 20200214
  2. DOCETAXEL. [Suspect]
     Active Substance: DOCETAXEL
     Indication: TONGUE NEOPLASM
     Dosage: ?          OTHER FREQUENCY:EVERY 21 DAYS;?
     Route: 042
     Dates: start: 20200214

REACTIONS (3)
  - Dyspnoea [None]
  - Infusion related reaction [None]
  - Feeling hot [None]

NARRATIVE: CASE EVENT DATE: 20200330
